FAERS Safety Report 10036219 (Version 3)
Quarter: 2014Q2

REPORT INFORMATION
  Report Type: Spontaneous
  Country: US (occurrence: US)
  Receive Date: 20140325
  Receipt Date: 20140422
  Transmission Date: 20141212
  Serious: Yes (Other)
  Sender: FDA-Public Use
  Company Number: US-CELGENEUS-163-21880-14022900

PATIENT
  Age: 82 Year
  Sex: Female
  Weight: 62.65 kg

DRUGS (16)
  1. REVLIMID [Suspect]
     Indication: MYELODYSPLASTIC SYNDROME
     Dosage: 10 MILLIGRAM
     Route: 048
     Dates: start: 20140213
  2. REVLIMID [Suspect]
     Route: 048
     Dates: start: 2014
  3. SYNTHROID [Concomitant]
     Indication: THYROIDECTOMY
     Route: 065
  4. METOPROLOL [Concomitant]
     Indication: PRODUCT USED FOR UNKNOWN INDICATION
     Route: 065
  5. LASIX [Concomitant]
     Indication: PRODUCT USED FOR UNKNOWN INDICATION
     Route: 065
  6. XANAX [Concomitant]
     Indication: PRODUCT USED FOR UNKNOWN INDICATION
     Route: 065
  7. ASA [Concomitant]
     Indication: PRODUCT USED FOR UNKNOWN INDICATION
     Route: 065
  8. BENICAR [Concomitant]
     Indication: PRODUCT USED FOR UNKNOWN INDICATION
     Route: 065
  9. LEVOTHYROXINE [Concomitant]
     Indication: PRODUCT USED FOR UNKNOWN INDICATION
     Route: 065
  10. HCTZ [Concomitant]
     Indication: PRODUCT USED FOR UNKNOWN INDICATION
     Route: 065
  11. ATORVASTATIN [Concomitant]
     Indication: PRODUCT USED FOR UNKNOWN INDICATION
     Dosage: 10 MILLIGRAM
     Route: 065
  12. PANTOPRAZOLE [Concomitant]
     Indication: PRODUCT USED FOR UNKNOWN INDICATION
     Route: 065
  13. MULTIVITAMINS [Concomitant]
     Indication: PRODUCT USED FOR UNKNOWN INDICATION
     Route: 065
  14. FISH OIL [Concomitant]
     Indication: PRODUCT USED FOR UNKNOWN INDICATION
     Dosage: 1000 MILLIGRAM
     Route: 065
  15. FERROUS SULFATE [Concomitant]
     Indication: PRODUCT USED FOR UNKNOWN INDICATION
     Route: 065
  16. CITALOPRAM [Concomitant]
     Indication: PRODUCT USED FOR UNKNOWN INDICATION
     Route: 048

REACTIONS (3)
  - Depression suicidal [Recovered/Resolved]
  - Sinus headache [Not Recovered/Not Resolved]
  - Rhinorrhoea [Not Recovered/Not Resolved]
